FAERS Safety Report 25032602 (Version 2)
Quarter: 2025Q1

REPORT INFORMATION
  Report Type: Spontaneous
  Country: NO (occurrence: NO)
  Receive Date: 20250303
  Receipt Date: 20250307
  Transmission Date: 20250409
  Serious: Yes (Hospitalization)
  Sender: OTSUKA
  Company Number: None

PATIENT
  Age: 41 Year
  Sex: Female
  Weight: 65 kg

DRUGS (1)
  1. ABILIFY MAINTENA [Suspect]
     Active Substance: ARIPIPRAZOLE
     Indication: Schizophrenia
     Dosage: 400 MG, QM (EVERY 26TH-30TH DAY)
     Route: 030
     Dates: start: 2015, end: 202404

REACTIONS (2)
  - Musculoskeletal disorder [Not Recovered/Not Resolved]
  - Nicotine dependence [Recovered/Resolved]

NARRATIVE: CASE EVENT DATE: 20240801
